FAERS Safety Report 19724130 (Version 3)
Quarter: 2021Q3

REPORT INFORMATION
  Report Type: Spontaneous
  Country: BR (occurrence: BR)
  Receive Date: 20210820
  Receipt Date: 20210927
  Transmission Date: 20211014
  Serious: Yes (Other)
  Sender: FDA-Public Use
  Company Number: BR-BAUSCH-BL-2021-027375

PATIENT
  Age: 54 Year
  Sex: Female

DRUGS (2)
  1. ACYCLOVIR. [Suspect]
     Active Substance: ACYCLOVIR
     Indication: HERPES ZOSTER
     Dosage: 200 MG, EVERY 6 HOURS DURING 14 DAYS
     Route: 048
  2. TAMOXIFEN [Concomitant]
     Active Substance: TAMOXIFEN
     Indication: INTRADUCTAL PROLIFERATIVE BREAST LESION

REACTIONS (2)
  - Recall phenomenon [Recovering/Resolving]
  - Radiation skin injury [Recovering/Resolving]

NARRATIVE: CASE EVENT DATE: 2016
